FAERS Safety Report 8244106-8 (Version None)
Quarter: 2012Q1

REPORT INFORMATION
  Report Type: 
  Country: None (occurrence: None)
  Receive Date: 20120329
  Receipt Date: 20120319
  Transmission Date: 20120608
  Serious: Yes (Other)
  Sender: FDA-Public Use
  Company Number: US-ABBOTT-12P-163-0916877-01

PATIENT
  Sex: Female
  Weight: 85.5 kg

DRUGS (13)
  1. HUMIRA [Suspect]
     Indication: CROHN'S DISEASE
     Route: 058
     Dates: start: 20050504, end: 20050504
  2. ORTHO TRI-CYCLEN [Concomitant]
     Indication: CONTRACEPTION
     Dosage: 1 PILL QD
     Dates: start: 20050101
  3. CIMZIA [Concomitant]
     Dates: start: 20090430
  4. METHOTREXATE [Concomitant]
     Indication: CROHN'S DISEASE
     Dates: start: 20040101
  5. FLAGYL [Concomitant]
     Indication: CROHN'S DISEASE
     Dates: start: 20070101
  6. SULFASALAZINE [Concomitant]
     Indication: CROHN'S DISEASE
     Dates: start: 20070101
  7. HUMIRA [Suspect]
     Route: 058
     Dates: end: 20090214
  8. HUMIRA [Suspect]
     Route: 058
     Dates: start: 20120313
  9. FOLIC ACID [Concomitant]
     Indication: VITAMIN SUPPLEMENTATION
     Dates: start: 20070101
  10. PREDNISONE TAB [Concomitant]
     Indication: ERYTHEMA NODOSUM
     Dates: start: 20090420
  11. HUMIRA [Suspect]
     Dosage: WEEK 2
     Route: 058
  12. CIMZIA [Concomitant]
     Indication: CROHN'S DISEASE
     Dates: start: 20090213, end: 20090430
  13. PREDNISONE TAB [Concomitant]
     Indication: CROHN'S DISEASE

REACTIONS (1)
  - SELECTIVE ABORTION [None]
